FAERS Safety Report 6650403-X (Version None)
Quarter: 2010Q1

REPORT INFORMATION
  Report Type: 
  Country: None (occurrence: None)
  Receive Date: 20100322
  Receipt Date: 20100309
  Transmission Date: 20100710
  Serious: Yes (Hospitalization)
  Sender: FDA-Public Use
  Company Number: 008536

PATIENT
  Age: 59 Year
  Sex: Female

DRUGS (9)
  1. LEVETIRACETAM [Suspect]
     Indication: STATUS EPILEPTICUS
  2. FUROSEMIDE [Concomitant]
  3. HYDROXYZINE [Concomitant]
  4. CLOBAZAM [Concomitant]
  5. PHENOBARBITAL TAB [Concomitant]
  6. LAMOTRIGINE [Concomitant]
  7. PANTOPRAZOLE [Concomitant]
  8. SPIRONOLACTONE [Concomitant]
  9. PARACETAMOL [Concomitant]

REACTIONS (1)
  - STATUS EPILEPTICUS [None]
